FAERS Safety Report 22285189 (Version 1)
Quarter: 2023Q2

REPORT INFORMATION
  Report Type: Spontaneous
  Country: US (occurrence: None)
  Receive Date: 20230503
  Receipt Date: 20230503
  Transmission Date: 20230721
  Serious: No
  Sender: FDA-Public Use
  Company Number: None

PATIENT
  Age: 71 Year
  Sex: Male
  Weight: 74.84 kg

DRUGS (30)
  1. TEMOZOLOMIDE [Suspect]
     Active Substance: TEMOZOLOMIDE
     Indication: Brain neoplasm malignant
     Dosage: 140MG DAILY ORAL
     Route: 048
     Dates: start: 202303
  2. TEMOZOLOMIDE [Suspect]
     Active Substance: TEMOZOLOMIDE
     Indication: Brain neoplasm malignant
     Dosage: 5MG DAILY ORAL
     Dates: start: 202303
  3. ASPIRIN [Concomitant]
     Active Substance: ASPIRIN
  4. ATORVASTATIN [Concomitant]
     Active Substance: ATORVASTATIN
  5. AZELASTINE HYDROCHLORIDE\FLUTICASONE PROPIONATE [Concomitant]
     Active Substance: AZELASTINE HYDROCHLORIDE\FLUTICASONE PROPIONATE
  6. COLACE [Concomitant]
     Active Substance: DOCUSATE SODIUM
  7. COZAAR [Concomitant]
     Active Substance: LOSARTAN POTASSIUM
  8. CRESTOR [Concomitant]
  9. DEXAMETHASONE [Concomitant]
     Active Substance: DEXAMETHASONE
  10. FLONASE [Concomitant]
     Active Substance: FLUTICASONE PROPIONATE
  11. IBUPROFEN [Concomitant]
     Active Substance: IBUPROFEN
  12. ISOSAPENT [Concomitant]
  13. JARDIANCE [Concomitant]
     Active Substance: EMPAGLIFLOZIN
  14. KEPPRA [Concomitant]
     Active Substance: LEVETIRACETAM
  15. POTASSIUM CHLORIDE [Concomitant]
     Active Substance: POTASSIUM CHLORIDE
  16. LANTUS [Concomitant]
     Active Substance: INSULIN GLARGINE
  17. LOPRESSOR [Concomitant]
     Active Substance: METOPROLOL TARTRATE
  18. MAGNESIUM [Concomitant]
     Active Substance: MAGNESIUM
  19. METFORMIN [Concomitant]
     Active Substance: METFORMIN HYDROCHLORIDE
  20. NORVASC [Concomitant]
     Active Substance: AMLODIPINE BESYLATE
  21. PANTOPRAZOLE [Concomitant]
     Active Substance: PANTOPRAZOLE
  22. PAXLOVID [Concomitant]
  23. POTASSIUM [Concomitant]
     Active Substance: POTASSIUM
  24. QUERCETIN [Concomitant]
     Active Substance: QUERCETIN
  25. VITAMIN C [Concomitant]
  26. RAMIPRIL [Concomitant]
     Active Substance: RAMIPRIL
  27. SPIRONOLACTONE [Concomitant]
  28. VASCEPA [Concomitant]
  29. VITAMIN D3 [Concomitant]
     Active Substance: CHOLECALCIFEROL
  30. ZINCOLATE [Concomitant]

REACTIONS (1)
  - Hospice care [None]
